FAERS Safety Report 10547868 (Version 1)
Quarter: 2014Q4

REPORT INFORMATION
  Report Type: Spontaneous
  Country: US (occurrence: None)
  Receive Date: 20141027
  Receipt Date: 20141027
  Transmission Date: 20150529
  Serious: Yes (Disabling)
  Sender: FDA-Public Use
  Company Number: None

PATIENT
  Age: 43 Year
  Sex: Female
  Weight: 46.27 kg

DRUGS (1)
  1. CIPROFLOXACIN. [Suspect]
     Active Substance: CIPROFLOXACIN
     Indication: URINARY TRACT INFECTION
     Dosage: 2 PILLS TWICE DAILY TAKEN BY MOUTH
     Route: 048
     Dates: start: 20130723, end: 20130801

REACTIONS (9)
  - Anxiety [None]
  - Muscular weakness [None]
  - Palpitations [None]
  - Hypoaesthesia [None]
  - Abdominal pain upper [None]
  - Blood glucose decreased [None]
  - Diabetes mellitus [None]
  - Ovarian cyst [None]
  - Neuropathy peripheral [None]

NARRATIVE: CASE EVENT DATE: 20130801
